FAERS Safety Report 12631263 (Version 2)
Quarter: 2016Q3

REPORT INFORMATION
  Report Type: Spontaneous
  Country: US (occurrence: US)
  Receive Date: 20160808
  Receipt Date: 20160808
  Transmission Date: 20161109
  Serious: No
  Sender: FDA-Public Use
  Company Number: US-BEH-2015053096

PATIENT
  Sex: Female

DRUGS (1)
  1. HIZENTRA [Suspect]
     Active Substance: HUMAN IMMUNOGLOBULIN G
     Indication: IMMUNODEFICIENCY COMMON VARIABLE
     Dosage: TAKING HIZENTRA UNDER A YEAR

REACTIONS (7)
  - Myalgia [Unknown]
  - Headache [Unknown]
  - Weight increased [Unknown]
  - Anaemia [Unknown]
  - Fatigue [Unknown]
  - Pain [Unknown]
  - Hot flush [Unknown]
